FAERS Safety Report 16173613 (Version 1)
Quarter: 2019Q2

REPORT INFORMATION
  Report Type: Spontaneous
  Country: DE (occurrence: DE)
  Receive Date: 20190409
  Receipt Date: 20190409
  Transmission Date: 20190711
  Serious: Yes (Hospitalization)
  Sender: FDA-Public Use
  Company Number: DE-DRREDDYS-GER/GER/19/0109188

PATIENT
  Age: 13 Year
  Sex: Female
  Weight: 58 kg

DRUGS (2)
  1. FLUTIDE JUNIOR 50 MICROGRAM [Concomitant]
     Indication: ASTHMA
     Route: 048
  2. IBUPROFEN. [Suspect]
     Active Substance: IBUPROFEN
     Indication: SUICIDAL IDEATION
     Dosage: DAILY DOSE: 4800 MG MILLGRAM(S) EVERY DAYS
     Route: 048
     Dates: start: 20180630, end: 20180630

REACTIONS (1)
  - Intentional overdose [Recovered/Resolved]

NARRATIVE: CASE EVENT DATE: 20180630
